FAERS Safety Report 7732203-2 (Version None)
Quarter: 2011Q3

REPORT INFORMATION
  Report Type: 
  Country: None (occurrence: None)
  Receive Date: 20110906
  Receipt Date: 20110822
  Transmission Date: 20111222
  Serious: No
  Sender: FDA-Public Use
  Company Number: US-AMGEN-USASP2011022009

PATIENT
  Sex: Female

DRUGS (1)
  1. PROLIA [Suspect]
     Indication: OSTEOPOROSIS POSTMENOPAUSAL
     Dosage: 60 MG, Q6MO
     Dates: start: 20110321

REACTIONS (9)
  - MIGRAINE [None]
  - HOT FLUSH [None]
  - FEELING JITTERY [None]
  - OROPHARYNGEAL PAIN [None]
  - CONSTIPATION [None]
  - FATIGUE [None]
  - DIARRHOEA [None]
  - URINARY TRACT INFECTION [None]
  - CHILLS [None]
